FAERS Safety Report 25384314 (Version 1)
Quarter: 2025Q2

REPORT INFORMATION
  Report Type: Spontaneous
  Country: CN (occurrence: CN)
  Receive Date: 20250602
  Receipt Date: 20250602
  Transmission Date: 20250717
  Serious: Yes (Life-Threatening, Hospitalization)
  Sender: MACLEODS
  Company Number: CN-MLMSERVICE-20250514-PI507472-00080-1

PATIENT

DRUGS (4)
  1. CARBIDOPA\ENTACAPONE\LEVODOPA [Suspect]
     Active Substance: CARBIDOPA\ENTACAPONE\LEVODOPA
     Indication: Parkinson^s disease
     Dosage: LEVODOPA/ CARBIDOPA/ENTACAPONE 100/50/200 MG TWICE DAILY
     Route: 065
  2. BENSERAZIDE\LEVODOPA [Suspect]
     Active Substance: BENSERAZIDE\LEVODOPA
     Indication: Parkinson^s disease
     Dosage: BENSERAZIDE/LEVODOPA 12.5/50 MG FOUR TIMES DAILY
     Route: 065
  3. SELEGILINE [Suspect]
     Active Substance: SELEGILINE
     Indication: Parkinson^s disease
     Route: 065
  4. AMANTADINE [Suspect]
     Active Substance: AMANTADINE
     Indication: Parkinson^s disease
     Route: 065

REACTIONS (2)
  - Dyskinesia hyperpyrexia syndrome [Recovered/Resolved]
  - Dyskinesia [Recovered/Resolved]
